FAERS Safety Report 17468431 (Version 1)
Quarter: 2020Q1

REPORT INFORMATION
  Report Type: Spontaneous
  Country: US (occurrence: US)
  Receive Date: 20200227
  Receipt Date: 20200227
  Transmission Date: 20200409
  Serious: Yes (Disabling)
  Sender: FDA-Public Use
  Company Number: None

PATIENT
  Age: 45 Year
  Sex: Male
  Weight: 86.85 kg

DRUGS (13)
  1. TRUVADA FOR PREP [Concomitant]
  2. NOSOCORT [Concomitant]
  3. GAPAPENTINE ARROW [Concomitant]
     Active Substance: GABAPENTIN
  4. FINASTERIDE. [Concomitant]
     Active Substance: FINASTERIDE
  5. BUSPAR [Concomitant]
     Active Substance: BUSPIRONE HYDROCHLORIDE
  6. TRIBENZOR [Concomitant]
     Active Substance: AMLODIPINE BESYLATE\HYDROCHLOROTHIAZIDE\OLMESARTAN MEDOXOMIL
  7. FEXOFENIDINE [Concomitant]
  8. CALCIUM +D [Concomitant]
     Active Substance: CALCIUM\VITAMIN D
  9. BELVIQ [Suspect]
     Active Substance: LORCASERIN HYDROCHLORIDE
     Indication: DECREASED APPETITE
     Dosage: ?          QUANTITY:1 TABLET(S);?
     Route: 048
  10. EFFEXOR XR [Concomitant]
     Active Substance: VENLAFAXINE HYDROCHLORIDE
  11. FEMOTIDINE [Concomitant]
  12. KRILL OIL [Concomitant]
     Active Substance: DIETARY SUPPLEMENT\KRILL OIL
  13. BELVIQ [Suspect]
     Active Substance: LORCASERIN HYDROCHLORIDE
     Indication: WEIGHT DECREASED
     Dosage: ?          QUANTITY:1 TABLET(S);?
     Route: 048

REACTIONS (4)
  - Confusional state [None]
  - Feeling abnormal [None]
  - Aphasia [None]
  - Amnesia [None]

NARRATIVE: CASE EVENT DATE: 20190415
